FAERS Safety Report 4619979-8 (Version None)
Quarter: 2005Q1

REPORT INFORMATION
  Report Type: 
  Country: None (occurrence: None)
  Receive Date: 20050323
  Receipt Date: 20050323
  Transmission Date: 20050727
  Serious: Yes (Hospitalization)
  Sender: FDA-Public Use
  Company Number: None

PATIENT
  Age: 8 Year
  Sex: Female

DRUGS (5)
  1. SODIUM CHLORIDE 0.9% [Suspect]
     Indication: INTRAVENOUS CATHETER MANAGEMENT
     Dosage: 10 ML IV SASH
     Route: 042
     Dates: start: 20041104, end: 20050310
  2. SODIUM CHLORIDE 0.9% [Suspect]
     Indication: VOMITING
     Dosage: 10 ML IV SASH
     Route: 042
     Dates: start: 20041104, end: 20050310
  3. SODIUM CHLORIDE 0.9% [Suspect]
  4. SODIUM CHLORIDE 0.9% [Suspect]
  5. SODIUM CHLORIDE 0.9% [Suspect]

REACTIONS (3)
  - BACTERIAL INFECTION [None]
  - IATROGENIC INJURY [None]
  - PHARMACEUTICAL PRODUCT COMPLAINT [None]
